FAERS Safety Report 7828291-5 (Version None)
Quarter: 2011Q4

REPORT INFORMATION
  Report Type: 
  Country: None (occurrence: None)
  Receive Date: 20111020
  Receipt Date: 20111014
  Transmission Date: 20120403
  Serious: No
  Sender: FDA-Public Use
  Company Number: US-PFIZER INC-2011217314

PATIENT
  Sex: Female

DRUGS (1)
  1. FLAGYL [Suspect]
     Indication: VAGINAL INFECTION
     Dosage: UNK
     Dates: start: 19900101

REACTIONS (2)
  - AGEUSIA [None]
  - DYSGEUSIA [None]
